FAERS Safety Report 17550534 (Version 1)
Quarter: 2020Q1

REPORT INFORMATION
  Report Type: Spontaneous
  Country: US (occurrence: US)
  Receive Date: 20200309
  Receipt Date: 20200309
  Transmission Date: 20200409
  Serious: Yes (Life-Threatening)
  Sender: FDA-Public Use
  Company Number: None

PATIENT
  Age: 36 Year
  Sex: Female
  Weight: 52.16 kg

DRUGS (1)
  1. EMGALITY [Suspect]
     Active Substance: GALCANEZUMAB-GNLM
     Route: 030

REACTIONS (6)
  - Anaphylactic reaction [None]
  - Hypertension [None]
  - Migraine [None]
  - Bundle branch block right [None]
  - Tachycardia [None]
  - Swollen tongue [None]

NARRATIVE: CASE EVENT DATE: 20170912
